FAERS Safety Report 4689319-7 (Version None)
Quarter: 2005Q2

REPORT INFORMATION
  Report Type: 
  Country: None (occurrence: None)
  Receive Date: 20050608
  Receipt Date: 20050325
  Transmission Date: 20051028
  Serious: No
  Sender: FDA-Public Use
  Company Number: 2005-BP-05129BP

PATIENT
  Sex: Female

DRUGS (5)
  1. SPIRIVA [Suspect]
     Indication: CHRONIC OBSTRUCTIVE PULMONARY DISEASE
     Dosage: 18 MCG (18 MCG, QD), IH
     Route: 055
     Dates: start: 20050101
  2. SPIRIVA [Suspect]
  3. ALBUTEROL [Concomitant]
  4. TYLENOL [Concomitant]
  5. CLONAZEPAM [Concomitant]

REACTIONS (5)
  - CANDIDIASIS [None]
  - DRY MOUTH [None]
  - DYSPHONIA [None]
  - INCREASED UPPER AIRWAY SECRETION [None]
  - RASH [None]
